FAERS Safety Report 23570536 (Version 1)
Quarter: 2024Q1

REPORT INFORMATION
  Report Type: Spontaneous
  Country: US (occurrence: None)
  Receive Date: 20240226
  Receipt Date: 20240226
  Transmission Date: 20240409
  Serious: Yes (Other)
  Sender: FDA-Public Use
  Company Number: None

PATIENT
  Age: 80 Year
  Sex: Female

DRUGS (1)
  1. PIRFENIDONE [Suspect]
     Active Substance: PIRFENIDONE
     Indication: Pulmonary fibrosis
     Dosage: 267MG TID ORAL
     Route: 048
     Dates: start: 20240122, end: 20240125

REACTIONS (2)
  - Diarrhoea [None]
  - Drug intolerance [None]

NARRATIVE: CASE EVENT DATE: 20240226
